FAERS Safety Report 24705291 (Version 1)
Quarter: 2024Q4

REPORT INFORMATION
  Report Type: Spontaneous
  Country: AE (occurrence: AE)
  Receive Date: 20241206
  Receipt Date: 20241206
  Transmission Date: 20250115
  Serious: Yes (Hospitalization)
  Sender: CHEPLAPHARM
  Company Number: None

PATIENT
  Age: 49 Year
  Sex: Male

DRUGS (11)
  1. OLANZAPINE [Suspect]
     Active Substance: OLANZAPINE
     Indication: Schizophrenia
     Dosage: DAILY DOSE: 20 MILLIGRAM
     Route: 048
  2. HALOPERIDOL DECANOATE [Suspect]
     Active Substance: HALOPERIDOL DECANOATE
     Indication: Schizophrenia
     Dosage: LONG ACTING INJECTION
     Route: 030
  3. VALPROATE SODIUM [Suspect]
     Active Substance: VALPROATE SODIUM
     Indication: Schizophrenia
     Dosage: 500 MG TWICE DAILY?DAILY DOSE: 1000 MILLIGRAM
  4. VALPROATE SODIUM [Suspect]
     Active Substance: VALPROATE SODIUM
     Indication: Schizophrenia
     Dosage: TITRATED UP TO 500 MG IN THE MORNING AND 1000 MG AT NIGHT?DAILY DOSE: 1500 MILLIGRAM
  5. HALOPERIDOL [Suspect]
     Active Substance: HALOPERIDOL
     Indication: Schizophrenia
     Dosage: 5 MILLIGRAM TWICE DAILY?DAILY DOSE: 10 MILLIGRAM
     Route: 048
  6. QUETIAPINE [Suspect]
     Active Substance: QUETIAPINE
     Indication: Schizophrenia
  7. QUETIAPINE [Suspect]
     Active Substance: QUETIAPINE
     Indication: Schizophrenia
     Dosage: TITRATED UP TO 300 MG TWICE DAILY?DAILY DOSE: 600 MILLIGRAM
  8. QUETIAPINE [Suspect]
     Active Substance: QUETIAPINE
     Indication: Schizophrenia
     Dosage: CONTINUED AT 400 MG TWICE DAILY?DAILY DOSE: 800 MILLIGRAM
  9. ARIPIPRAZOLE [Suspect]
     Active Substance: ARIPIPRAZOLE
     Indication: Schizophrenia
     Dosage: LONG ACTING INJECTION; 400 MG MONTHLY
     Route: 030
  10. LITHIUM [Suspect]
     Active Substance: LITHIUM
     Indication: Schizophrenia
     Dosage: 300 MG TWICE DAILY?DAILY DOSE: 600 MILLIGRAM
  11. LITHIUM [Suspect]
     Active Substance: LITHIUM
     Indication: Schizophrenia
     Dosage: TITRATED UP TO 1000 MG DAILY?DAILY DOSE: 1000 MILLIGRAM

REACTIONS (2)
  - Hyponatraemia [Recovering/Resolving]
  - Drug ineffective [Unknown]
